FAERS Safety Report 26058737 (Version 1)
Quarter: 2025Q4

REPORT INFORMATION
  Report Type: Spontaneous
  Country: EU (occurrence: EU)
  Receive Date: 20251118
  Receipt Date: 20251118
  Transmission Date: 20260117
  Serious: Yes (Hospitalization)
  Sender: BOEHRINGER INGELHEIM
  Company Number: EU-BoehringerIngelheim-2025-BI-107192

PATIENT
  Age: 73 Year
  Sex: Female

DRUGS (7)
  1. OLODATEROL\TIOTROPIUM [Suspect]
     Active Substance: OLODATEROL\TIOTROPIUM
     Indication: Chronic obstructive pulmonary disease
     Dosage: 2 ACTUATIONS IN THE MORNING
  2. BISOPROLOL [Concomitant]
     Active Substance: BISOPROLOL
  3. RAMIPRIL [Concomitant]
     Active Substance: RAMIPRIL
  4. RIVAROXABAN [Concomitant]
     Active Substance: RIVAROXABAN
  5. FUROSEMIDE [Concomitant]
     Active Substance: FUROSEMIDE
  6. SPIRONOLACTONE [Concomitant]
     Active Substance: SPIRONOLACTONE
  7. METFORMIN [Concomitant]
     Active Substance: METFORMIN HYDROCHLORIDE

REACTIONS (1)
  - Cardiac failure [Unknown]
